FAERS Safety Report 5486453-9 (Version None)
Quarter: 2007Q4

REPORT INFORMATION
  Report Type: 
  Country: None (occurrence: None)
  Receive Date: 20071016
  Receipt Date: 20071012
  Transmission Date: 20080405
  Serious: Yes (Other)
  Sender: FDA-Public Use
  Company Number: A0687571A

PATIENT
  Age: 9 Year
  Sex: Male

DRUGS (2)
  1. PAXIL [Suspect]
     Indication: DEPRESSION
     Dosage: 5MG AT NIGHT
     Route: 048
     Dates: start: 20070913
  2. MELATONIN [Concomitant]

REACTIONS (10)
  - ABNORMAL BEHAVIOUR [None]
  - AGITATION [None]
  - DIARRHOEA [None]
  - EYE MOVEMENT DISORDER [None]
  - FOOD HOARDING [None]
  - INSOMNIA [None]
  - INTENTIONAL SELF-INJURY [None]
  - STOMACH DISCOMFORT [None]
  - THEFT [None]
  - TREATMENT NONCOMPLIANCE [None]
